FAERS Safety Report 22152492 (Version 1)
Quarter: 2023Q1

REPORT INFORMATION
  Report Type: Report from Study
  Country: US (occurrence: US)
  Receive Date: 20230329
  Receipt Date: 20230329
  Transmission Date: 20230418
  Serious: Yes (Other)
  Sender: FDA-Public Use
  Company Number: US-002147023-NVSC2023US068667

PATIENT
  Sex: Female

DRUGS (1)
  1. LEQVIO [Suspect]
     Active Substance: INCLISIRAN SODIUM
     Indication: Product used for unknown indication
     Dosage: UNK
     Route: 058
     Dates: start: 202303

REACTIONS (9)
  - Polymyalgia rheumatica [Unknown]
  - Facial pain [Unknown]
  - Illness [Unknown]
  - Gastrointestinal disorder [Unknown]
  - General physical health deterioration [Unknown]
  - Trigeminal nerve disorder [Unknown]
  - Arthropathy [Unknown]
  - Confusional state [Unknown]
  - Dysuria [Unknown]
